FAERS Safety Report 21095562 (Version 2)
Quarter: 2022Q3

REPORT INFORMATION
  Report Type: Spontaneous
  Country: US (occurrence: US)
  Receive Date: 20220718
  Receipt Date: 20220728
  Transmission Date: 20221027
  Serious: Yes (Other)
  Sender: FDA-Public Use
  Company Number: US-PFIZER INC-202200962320

PATIENT
  Age: 82 Year
  Sex: Female
  Weight: 53.98 kg

DRUGS (3)
  1. IBRANCE [Suspect]
     Active Substance: PALBOCICLIB
     Indication: Breast cancer female
     Dosage: 75 MG, CYCLIC (TAKES IBRANCE FOR 21-DAYS AND THEN HAS A 7-DAY BREAK)
  2. FASLODEX [Suspect]
     Active Substance: FULVESTRANT
     Dosage: UNK
  3. XGEVA [Suspect]
     Active Substance: DENOSUMAB

REACTIONS (12)
  - Jaw fracture [Unknown]
  - Injection site mass [Not Recovered/Not Resolved]
  - Illness [Not Recovered/Not Resolved]
  - Arthropathy [Not Recovered/Not Resolved]
  - Blister [Not Recovered/Not Resolved]
  - Back disorder [Not Recovered/Not Resolved]
  - Full blood count abnormal [Unknown]
  - Musculoskeletal stiffness [Not Recovered/Not Resolved]
  - Gait inability [Unknown]
  - Dry skin [Unknown]
  - Hypoaesthesia [Unknown]
  - Tooth loss [Unknown]
